FAERS Safety Report 12977735 (Version 1)
Quarter: 2016Q4

REPORT INFORMATION
  Report Type: Report from Study
  Country: ZA (occurrence: ZA)
  Receive Date: 20161128
  Receipt Date: 20161128
  Transmission Date: 20170207
  Serious: Yes (Death, Other)
  Sender: FDA-Public Use
  Company Number: ZA-AMGEN-ZAFSL2016166345

PATIENT
  Age: 43 Year
  Sex: Male

DRUGS (1)
  1. ARANESP [Suspect]
     Active Substance: DARBEPOETIN ALFA
     Indication: HYPERPARATHYROIDISM SECONDARY
     Dosage: UNK
     Route: 058
     Dates: start: 201607, end: 201608

REACTIONS (1)
  - Death [Fatal]

NARRATIVE: CASE EVENT DATE: 201608
